FAERS Safety Report 19303435 (Version 5)
Quarter: 2021Q4

REPORT INFORMATION
  Report Type: Spontaneous
  Country: US (occurrence: US)
  Receive Date: 20210525
  Receipt Date: 20211011
  Transmission Date: 20220303
  Serious: No
  Sender: FDA-Public Use
  Company Number: US-PFIZER INC-2021537898

PATIENT
  Age: 14 Year
  Sex: Male
  Weight: 49.44 kg

DRUGS (4)
  1. GENOTROPIN [Suspect]
     Active Substance: SOMATROPIN
     Indication: Growth hormone deficiency
     Dosage: 3-4 YEARS AGO
  2. GENOTROPIN [Suspect]
     Active Substance: SOMATROPIN
     Dosage: 2.4 MG EVERY NIGHT AT BEDTIME SIX NIGHTS A WEEK, USUALLY SKIPS ON FRIDAY NIGHTS
  3. GENOTROPIN [Suspect]
     Active Substance: SOMATROPIN
     Dosage: 2.4 MG EVERY NIGHT AT BEDTIME SIX NIGHTS A WEEK, USUALLY SKIPS ON FRIDAY NIGHTS
     Dates: start: 202002, end: 20210512
  4. GENOTROPIN [Suspect]
     Active Substance: SOMATROPIN
     Dosage: 2.6 UNITS NOT SPECIFIED IN THE AFTERNOON AND NONE ON FRIDAY IN ARMS AND STOMACH
     Route: 058
     Dates: start: 2019

REACTIONS (4)
  - Weight decreased [Unknown]
  - Drug dose omission by device [Unknown]
  - Device mechanical issue [Unknown]
  - Device failure [Unknown]

NARRATIVE: CASE EVENT DATE: 20210501
